FAERS Safety Report 7733683-9 (Version None)
Quarter: 2011Q3

REPORT INFORMATION
  Report Type: 
  Country: None (occurrence: None)
  Receive Date: 20110907
  Receipt Date: 20110901
  Transmission Date: 20111222
  Serious: Yes (Other)
  Sender: FDA-Public Use
  Company Number: US-GENZYME-FABR-1002133

PATIENT

DRUGS (3)
  1. FABRAZYME [Suspect]
     Dosage: 0.6 MG/KG, Q2W
     Route: 042
  2. FABRAZYME [Suspect]
     Dosage: 1 MG/KG, Q2W
     Route: 042
     Dates: start: 20050713
  3. FABRAZYME [Suspect]
     Indication: FABRY'S DISEASE
     Dosage: 0.47 MG/KG, Q2W
     Route: 042

REACTIONS (7)
  - GASTROINTESTINAL DISORDER [None]
  - WEIGHT DECREASED [None]
  - PAIN [None]
  - RENAL FAILURE [None]
  - FATIGUE [None]
  - CARDIAC DISORDER [None]
  - EJECTION FRACTION DECREASED [None]
